FAERS Safety Report 24043934 (Version 1)
Quarter: 2024Q3

REPORT INFORMATION
  Report Type: Spontaneous
  Country: US (occurrence: US)
  Receive Date: 20240703
  Receipt Date: 20240703
  Transmission Date: 20241017
  Serious: Yes (Death, Other)
  Sender: AMGEN
  Company Number: US-AMGEN-USASP2024126017

PATIENT
  Age: 69 Year
  Sex: Male

DRUGS (1)
  1. ADALIMUMAB [Suspect]
     Active Substance: ADALIMUMAB\ISOPROPYL ALCOHOL
     Indication: Rheumatoid arthritis
     Dosage: UNK
     Route: 065

REACTIONS (8)
  - Death [Fatal]
  - Granulomatous liver disease [Unknown]
  - Metastatic neoplasm [Unknown]
  - Septic shock [Unknown]
  - Abdominal discomfort [Unknown]
  - Decubitus ulcer [Unknown]
  - Constipation [Unknown]
  - COVID-19 [Unknown]
